FAERS Safety Report 14900651 (Version 1)
Quarter: 2018Q2

REPORT INFORMATION
  Report Type: Spontaneous
  Country: US (occurrence: US)
  Receive Date: 20180516
  Receipt Date: 20180516
  Transmission Date: 20180711
  Serious: Yes (Other)
  Sender: FDA-Public Use
  Company Number: US-SA-2018SA136670

PATIENT
  Age: 31 Year
  Sex: Female

DRUGS (2)
  1. ORTHO-NOVUM [Concomitant]
     Active Substance: ETHINYL ESTRADIOL\NORETHINDRONE
     Route: 065
  2. DUPIXENT [Suspect]
     Active Substance: DUPILUMAB
     Dosage: 1 SYRINGE EVERY TWO WEEKS
     Route: 058
     Dates: start: 20170803

REACTIONS (1)
  - Carpal tunnel syndrome [Unknown]
